FAERS Safety Report 18284893 (Version 1)
Quarter: 2020Q3

REPORT INFORMATION
  Report Type: Report from Study
  Country: CA (occurrence: CA)
  Receive Date: 20200918
  Receipt Date: 20200918
  Transmission Date: 20201103
  Serious: Yes (Other)
  Sender: FDA-Public Use
  Company Number: CA-JNJFOC-20200915901

PATIENT
  Age: 77 Year
  Sex: Male

DRUGS (1)
  1. ERLEADA [Suspect]
     Active Substance: APALUTAMIDE
     Indication: HORMONE-DEPENDENT PROSTATE CANCER
     Route: 048
     Dates: start: 20200713

REACTIONS (3)
  - Neuropathy peripheral [Not Recovered/Not Resolved]
  - Hot flush [Unknown]
  - Nausea [Not Recovered/Not Resolved]

NARRATIVE: CASE EVENT DATE: 20200728
